FAERS Safety Report 15957034 (Version 1)
Quarter: 2019Q1

REPORT INFORMATION
  Report Type: Spontaneous
  Country: NL (occurrence: NL)
  Receive Date: 20190213
  Receipt Date: 20190213
  Transmission Date: 20190417
  Serious: Yes (Other)
  Sender: FDA-Public Use
  Company Number: NL-MYLANLABS-2019M1012471

PATIENT
  Age: 74 Year
  Sex: Male
  Weight: 83 kg

DRUGS (1)
  1. EFUDIX 50 MG/G CREAM [Suspect]
     Active Substance: FLUOROURACIL
     Indication: SKIN CANCER
     Dosage: 1 DOSAGE FORM, BID (2 X PER DAY)
     Route: 003
     Dates: start: 20180716

REACTIONS (4)
  - Cough [Recovering/Resolving]
  - Immunodeficiency [Recovering/Resolving]
  - Poor quality sleep [Recovering/Resolving]
  - Diarrhoea [Recovering/Resolving]

NARRATIVE: CASE EVENT DATE: 20180722
